FAERS Safety Report 8169607-2 (Version None)
Quarter: 2012Q1

REPORT INFORMATION
  Report Type: 
  Country: None (occurrence: None)
  Receive Date: 20120228
  Receipt Date: 20120217
  Transmission Date: 20120608
  Serious: Yes (Other)
  Sender: FDA-Public Use
  Company Number: US-BAYER-201028370NA

PATIENT
  Age: 36 Year
  Sex: Female
  Weight: 82.54 kg

DRUGS (16)
  1. EPINEPHRINE [Concomitant]
     Dosage: 0.3 MG, UNK
     Route: 058
     Dates: start: 20080421
  2. PREDNISONE [Concomitant]
     Dosage: UNK
     Dates: start: 20080719
  3. PROPOXYPHENE NAPSYLATE W/ ACETAMINOPHEN [Concomitant]
     Indication: PAIN
     Dosage: UNK UNK, PRN
     Route: 048
  4. TESSALON [Concomitant]
     Dosage: 200 MG, TID
     Dates: start: 20080421
  5. FACTIVE [Concomitant]
     Dosage: 320 MG, QD
     Route: 048
     Dates: start: 20080421
  6. YAZ [Suspect]
     Indication: FEMALE STERILISATION
     Route: 048
     Dates: start: 20080601, end: 20080801
  7. ULTRACET [Concomitant]
     Dosage: UNK
     Route: 048
     Dates: start: 20080101, end: 20080101
  8. PHENERGAN [Concomitant]
     Dosage: UNK
     Route: 048
     Dates: start: 20080101
  9. ZYRTEC [Concomitant]
  10. SINGULAIR [Concomitant]
     Dosage: 10 MG, UNK
     Route: 048
     Dates: start: 20080301
  11. ARMODAFINIL [Concomitant]
     Dosage: 150 MG, QD
     Dates: start: 20080421
  12. OXYCODONE HCL AND ACETAMINOPHEN [Concomitant]
     Dosage: UNK UNK, QID
     Route: 048
     Dates: start: 20080602
  13. EPINEPHRINE [Concomitant]
     Indication: HYPERSENSITIVITY
     Dosage: UNK
     Route: 058
     Dates: start: 20070101
  14. YASMIN [Suspect]
     Indication: FEMALE STERILISATION
  15. PROVENTIL-HFA [Concomitant]
     Dosage: 90 UNK, UNK
     Dates: start: 20080301
  16. NABUMETONE [Concomitant]
     Dosage: 750 MG, BID
     Route: 048
     Dates: start: 20080719

REACTIONS (6)
  - DEEP VEIN THROMBOSIS [None]
  - EMOTIONAL DISTRESS [None]
  - DEPRESSION [None]
  - FEAR [None]
  - PAIN IN EXTREMITY [None]
  - ANXIETY [None]
